FAERS Safety Report 20665796 (Version 2)
Quarter: 2022Q2

REPORT INFORMATION
  Report Type: Spontaneous
  Country: BR (occurrence: BR)
  Receive Date: 20220402
  Receipt Date: 20220502
  Transmission Date: 20220720
  Serious: Yes (Hospitalization, Other)
  Sender: FDA-Public Use
  Company Number: BR-TEVA BRAZIL-2022-BR-2020092

PATIENT
  Age: 27 Year
  Sex: Female

DRUGS (9)
  1. COPAXONE [Suspect]
     Active Substance: GLATIRAMER ACETATE
     Indication: Multiple sclerosis
     Route: 065
     Dates: start: 2019
  2. PHENYTOIN [Interacting]
     Active Substance: PHENYTOIN
     Route: 065
  3. CORTICOSTEROID NOS [Interacting]
     Active Substance: CORTICOSTEROID NOS
     Route: 065
  4. LAMOTRIGINE [Concomitant]
     Active Substance: LAMOTRIGINE
     Dates: end: 202202
  5. Gadernal [Concomitant]
     Dates: start: 202202
  6. CLOBAZAM [Concomitant]
     Active Substance: CLOBAZAM
     Dosage: 20 MILLIGRAM DAILY;
     Dates: start: 202202
  7. VENLAFAXINE [Concomitant]
     Active Substance: VENLAFAXINE HYDROCHLORIDE
  8. SERTRALINE [Concomitant]
     Active Substance: SERTRALINE HYDROCHLORIDE
  9. FLUNARIZINE HYDROCHLORIDE [Concomitant]
     Active Substance: FLUNARIZINE HYDROCHLORIDE
     Dosage: 10 MILLIGRAM DAILY;

REACTIONS (12)
  - Multiple sclerosis relapse [Unknown]
  - Drug-induced liver injury [Unknown]
  - Seizure [Unknown]
  - Bipolar disorder [Not Recovered/Not Resolved]
  - Head injury [Unknown]
  - Fall [Unknown]
  - Drug interaction [Unknown]
  - Hepatic enzyme abnormal [Not Recovered/Not Resolved]
  - Confusional state [Not Recovered/Not Resolved]
  - Memory impairment [Not Recovered/Not Resolved]
  - Logorrhoea [Not Recovered/Not Resolved]
  - Gait disturbance [Not Recovered/Not Resolved]

NARRATIVE: CASE EVENT DATE: 20191201
